FAERS Safety Report 12783587 (Version 1)
Quarter: 2016Q3

REPORT INFORMATION
  Report Type: Spontaneous
  Country: US (occurrence: US)
  Receive Date: 20160927
  Receipt Date: 20160927
  Transmission Date: 20161109
  Serious: No
  Sender: FDA-Public Use
  Company Number: US-JNJFOC-20160918601

PATIENT
  Age: 64 Year
  Sex: Male
  Weight: 97.52 kg

DRUGS (1)
  1. LEVAQUIN [Suspect]
     Active Substance: LEVOFLOXACIN
     Indication: ATYPICAL PNEUMONIA
     Route: 048
     Dates: start: 20160906, end: 20160908

REACTIONS (4)
  - Palpitations [Recovered/Resolved]
  - Night sweats [Not Recovered/Not Resolved]
  - Tremor [Recovering/Resolving]
  - Dizziness [Not Recovered/Not Resolved]

NARRATIVE: CASE EVENT DATE: 201609
